FAERS Safety Report 5205542-7 (Version None)
Quarter: 2006Q4

REPORT INFORMATION
  Report Type: 
  Country: None (occurrence: None)
  Receive Date: 20061027
  Receipt Date: 20060622
  Transmission Date: 20070319
  Serious: No
  Sender: FDA-Public Use
  Company Number: 200615481US

PATIENT

DRUGS (2)
  1. KETEK [Suspect]
     Dosage: PO
     Route: 048
  2. DIABETIC MEDICATIONS [Concomitant]

REACTIONS (1)
  - BLOOD GLUCOSE INCREASED [None]
